FAERS Safety Report 15488440 (Version 1)
Quarter: 2018Q4

REPORT INFORMATION
  Report Type: Spontaneous
  Country: US (occurrence: US)
  Receive Date: 20181003
  Receipt Date: 20181003
  Transmission Date: 20190205
  Serious: Yes (Disabling, Other)
  Sender: FDA-Public Use
  Company Number: None

PATIENT
  Age: 36 Year
  Sex: Female
  Weight: 63.5 kg

DRUGS (3)
  1. VITREX [Concomitant]
  2. MIRENA [Suspect]
     Active Substance: LEVONORGESTREL
     Dates: start: 20171101, end: 20180928
  3. EVENING PRIMROSE [Concomitant]

REACTIONS (4)
  - Hypoaesthesia [None]
  - Headache [None]
  - Thrombosis [None]
  - Haemorrhage [None]

NARRATIVE: CASE EVENT DATE: 20180630
